FAERS Safety Report 8473119-6 (Version None)
Quarter: 2012Q2

REPORT INFORMATION
  Report Type: 
  Country: None (occurrence: None)
  Receive Date: 20120627
  Receipt Date: 20120605
  Transmission Date: 20120825
  Serious: Yes (Other)
  Sender: FDA-Public Use
  Company Number: IT-BAXTER-2011BH029266

PATIENT
  Sex: Female

DRUGS (6)
  1. CYCLOPHOSPHAMIDE [Suspect]
     Route: 042
     Dates: start: 20110527, end: 20110716
  2. MYCOSTATIN [Concomitant]
     Route: 065
  3. PREDNISONE TAB [Concomitant]
     Route: 065
  4. BACTRIM [Concomitant]
     Route: 065
  5. RANITIDINE HCL [Concomitant]
     Route: 065
  6. CYTARABINE [Suspect]
     Route: 058
     Dates: start: 20110527, end: 20110716

REACTIONS (2)
  - BRUXISM [None]
  - AGITATION [None]
